FAERS Safety Report 4595988-2 (Version None)
Quarter: 2005Q1

REPORT INFORMATION
  Report Type: 
  Country: None (occurrence: None)
  Receive Date: 20050224
  Receipt Date: 20050209
  Transmission Date: 20050727
  Serious: Yes (Hospitalization)
  Sender: FDA-Public Use
  Company Number: JP_041205488

PATIENT
  Age: 68 Year
  Sex: Female
  Weight: 43 kg

DRUGS (5)
  1. EVISTA [Suspect]
     Indication: OSTEOPOROSIS
     Dosage: 60 MG/1 DAY
     Dates: start: 20041127, end: 20041206
  2. SOLETON (ZALTOPROFEN) [Concomitant]
  3. MUCOSTA (REBAMIPIDE) [Concomitant]
  4. MOBIC [Concomitant]
  5. NIZATIDINE [Concomitant]

REACTIONS (15)
  - ARTHRITIS [None]
  - ATELECTASIS [None]
  - BACK PAIN [None]
  - C-REACTIVE PROTEIN INCREASED [None]
  - CHEST PAIN [None]
  - CHEST X-RAY ABNORMAL [None]
  - COLLAGEN DISORDER [None]
  - DNA ANTIBODY POSITIVE [None]
  - DYSPNOEA [None]
  - FIBRIN D DIMER INCREASED [None]
  - FIBRIN DEGRADATION PRODUCTS INCREASED [None]
  - LUNG DISORDER [None]
  - PULMONARY EMBOLISM [None]
  - PYREXIA [None]
  - VASCULITIS [None]
